FAERS Safety Report 5865927-2 (Version None)
Quarter: 2008Q3

REPORT INFORMATION
  Report Type: 
  Country: None (occurrence: None)
  Receive Date: 20080829
  Receipt Date: 20080818
  Transmission Date: 20090109
  Serious: Yes (Other)
  Sender: FDA-Public Use
  Company Number: NL-AMGEN-US304583

PATIENT
  Age: 28 Year
  Sex: Male

DRUGS (3)
  1. ENBREL [Suspect]
     Indication: ANKYLOSING SPONDYLITIS
     Route: 058
     Dates: start: 20040906
  2. ARCOXIA [Concomitant]
     Route: 065
  3. VIOXX [Concomitant]
     Dosage: UNKNOWN
     Route: 065

REACTIONS (1)
  - ALANINE AMINOTRANSFERASE INCREASED [None]
